FAERS Safety Report 22305516 (Version 1)
Quarter: 2023Q2

REPORT INFORMATION
  Report Type: Spontaneous
  Country: CZ (occurrence: None)
  Receive Date: 20230510
  Receipt Date: 20230510
  Transmission Date: 20230721
  Serious: Yes (Other)
  Sender: FDA-Public Use
  Company Number: 2023A103891

PATIENT
  Age: 44 Year
  Sex: Male

DRUGS (3)
  1. ROSUVASTATIN [Suspect]
     Active Substance: ROSUVASTATIN
     Indication: Hypercholesterolaemia
     Route: 048
  2. EZETIMIBE [Concomitant]
     Active Substance: EZETIMIBE
  3. ALIROCUMAB [Concomitant]
     Active Substance: ALIROCUMAB

REACTIONS (3)
  - Myocardial infarction [Unknown]
  - Lipoprotein (a) abnormal [Unknown]
  - Product use issue [Unknown]
